FAERS Safety Report 5903185-0 (Version None)
Quarter: 2008Q3

REPORT INFORMATION
  Report Type: 
  Country: None (occurrence: None)
  Receive Date: 20080926
  Receipt Date: 20080907
  Transmission Date: 20090109
  Serious: Yes (Life-Threatening, Hospitalization, Other)
  Sender: FDA-Public Use
  Company Number: IPS_01282_2008

PATIENT
  Age: 65 Year
  Sex: Male

DRUGS (3)
  1. APOMINE (APOMINE - APOMORPHINE HYDROCHLORIDE) (NOT SPECIFIED) [Suspect]
     Indication: PARKINSON'S DISEASE
     Dosage: (DF FOR 1 WEEK 2 DAYS SUBCUTANEOUS)
     Route: 058
     Dates: start: 20080813, end: 20080821
  2. ENTACAPONE (UNKNOWN) [Concomitant]
  3. SINEMET [Concomitant]

REACTIONS (5)
  - DYSPNOEA [None]
  - HERPES ZOSTER [None]
  - OEDEMA PERIPHERAL [None]
  - RASH [None]
  - TACHYCARDIA [None]
